FAERS Safety Report 13665034 (Version 1)
Quarter: 2017Q2

REPORT INFORMATION
  Report Type: Spontaneous
  Country: HR (occurrence: HR)
  Receive Date: 20170619
  Receipt Date: 20170619
  Transmission Date: 20170830
  Serious: Yes (Hospitalization)
  Sender: FDA-Public Use
  Company Number: HR-FRESENIUS KABI-FK201705102

PATIENT
  Age: 77 Year
  Sex: Female

DRUGS (3)
  1. VANCOMYCIN (MANUFACTURER UNKNOWN) [Suspect]
     Active Substance: VANCOMYCIN
     Indication: PRODUCT USED FOR UNKNOWN INDICATION
     Route: 065
  2. PIPERACILLIN/TAZOBACTAM (MANUFACTURER UNKNOWN) [Suspect]
     Active Substance: PIPERACILLIN SODIUM\TAZOBACTAM SODIUM
     Indication: PRODUCT USED FOR UNKNOWN INDICATION
     Route: 042
  3. MEROPENEM (MANUFACTURER UNKNOWN) [Suspect]
     Active Substance: MEROPENEM
     Indication: PRODUCT USED FOR UNKNOWN INDICATION
     Route: 042

REACTIONS (1)
  - Toxic epidermal necrolysis [Fatal]
